FAERS Safety Report 11238771 (Version 1)
Quarter: 2015Q3

REPORT INFORMATION
  Report Type: Spontaneous
  Country: US (occurrence: US)
  Receive Date: 20150706
  Receipt Date: 20150706
  Transmission Date: 20151125
  Serious: Yes (Hospitalization)
  Sender: FDA-Public Use
  Company Number: US-AMGEN-USASP2015065397

PATIENT
  Sex: Female

DRUGS (4)
  1. HYDROXYUREA. [Concomitant]
     Active Substance: HYDROXYUREA
     Indication: SICKLE CELL ANAEMIA
     Dosage: UNK, DAILY
  2. PROCRIT [Suspect]
     Active Substance: ERYTHROPOIETIN
     Indication: RENAL INJURY
  3. PROCRIT [Suspect]
     Active Substance: ERYTHROPOIETIN
     Indication: SICKLE CELL ANAEMIA
     Dosage: 100-3000 PER KG, DAILY FOR 3-4 MONTHS OR TWICE PER WEEK
     Route: 065
  4. PROCRIT [Suspect]
     Active Substance: ERYTHROPOIETIN
     Indication: CHRONIC KIDNEY DISEASE

REACTIONS (3)
  - Off label use [Unknown]
  - Pregnancy [Unknown]
  - Sickle cell anaemia [Unknown]
